FAERS Safety Report 20428730 (Version 1)
Quarter: 2022Q1

REPORT INFORMATION
  Report Type: Spontaneous
  Country: DE (occurrence: DE)
  Receive Date: 20220204
  Receipt Date: 20220204
  Transmission Date: 20220423
  Serious: Yes (Death, Other)
  Sender: FDA-Public Use
  Company Number: DE-ASTELLAS-2022US003473

PATIENT
  Age: 20 Year
  Sex: Female

DRUGS (4)
  1. TACROLIMUS [Suspect]
     Active Substance: TACROLIMUS
     Indication: Heart transplant
     Dosage: UNK UNK, UNKNOWN FREQ.
     Route: 065
     Dates: end: 2020
  2. TACROLIMUS [Suspect]
     Active Substance: TACROLIMUS
     Dosage: UNK UNK, UNKNOWN FREQ.
     Route: 065
     Dates: start: 2020
  3. EVEROLIMUS [Concomitant]
     Active Substance: EVEROLIMUS
     Indication: Heart transplant
     Dosage: UNK UNK, UNKNOWN FREQ.
     Route: 065
     Dates: end: 2020
  4. EVEROLIMUS [Concomitant]
     Active Substance: EVEROLIMUS
     Dosage: UNK UNK, UNKNOWN FREQ.
     Route: 065
     Dates: start: 2020

REACTIONS (10)
  - Hepatic failure [Fatal]
  - Malignant neoplasm progression [Fatal]
  - Epstein-Barr virus infection reactivation [Fatal]
  - Post transplant lymphoproliferative disorder [Unknown]
  - Diffuse large B-cell lymphoma [Unknown]
  - Smooth muscle cell neoplasm [Unknown]
  - Epstein-Barr viraemia [Unknown]
  - Sepsis [Unknown]
  - Pneumonia fungal [Unknown]
  - Acute kidney injury [Unknown]

NARRATIVE: CASE EVENT DATE: 20180101
